FAERS Safety Report 17049799 (Version 1)
Quarter: 2019Q4

REPORT INFORMATION
  Report Type: Spontaneous
  Country: EG (occurrence: EG)
  Receive Date: 20191119
  Receipt Date: 20191119
  Transmission Date: 20200122
  Serious: Yes (Death)
  Sender: FDA-Public Use
  Company Number: EG-ALLERGAN-1946965US

PATIENT

DRUGS (2)
  1. URSODEOXYCHOLIC ACID UNK [Suspect]
     Active Substance: URSODIOL
     Indication: CHOLESTASIS
  2. FAT-SOLUBLE VITAMIN SUPPLEMENTS [Concomitant]

REACTIONS (3)
  - Drug ineffective [Unknown]
  - Death [Fatal]
  - Off label use [Unknown]
